FAERS Safety Report 24146624 (Version 6)
Quarter: 2025Q1

REPORT INFORMATION
  Report Type: Report from Study
  Country: CA (occurrence: CA)
  Receive Date: 20240729
  Receipt Date: 20250321
  Transmission Date: 20250409
  Serious: Yes (Other)
  Sender: CELLTRION
  Company Number: CA-CELLTRION INC.-2022CA022616

PATIENT

DRUGS (35)
  1. RITUXIMAB-ABBS [Suspect]
     Active Substance: RITUXIMAB-ABBS
     Indication: Rheumatoid arthritis
     Route: 042
     Dates: start: 20220802
  2. RITUXIMAB-ABBS [Suspect]
     Active Substance: RITUXIMAB-ABBS
     Dates: start: 20220816
  3. RITUXIMAB-ABBS [Suspect]
     Active Substance: RITUXIMAB-ABBS
     Route: 042
     Dates: start: 20220802
  4. RITUXIMAB-ABBS [Suspect]
     Active Substance: RITUXIMAB-ABBS
     Route: 042
     Dates: start: 20220802
  5. RITUXIMAB-ABBS [Suspect]
     Active Substance: RITUXIMAB-ABBS
     Route: 042
     Dates: start: 20220802
  6. RITUXIMAB-ABBS [Suspect]
     Active Substance: RITUXIMAB-ABBS
     Route: 042
     Dates: start: 20230808
  7. RITUXIMAB-ABBS [Suspect]
     Active Substance: RITUXIMAB-ABBS
     Dosage: 1000 MG, DAY 1 AND 15
     Route: 042
     Dates: start: 20220802
  8. RITUXIMAB-ABBS [Suspect]
     Active Substance: RITUXIMAB-ABBS
     Route: 042
     Dates: start: 20220802
  9. RITUXIMAB-ABBS [Suspect]
     Active Substance: RITUXIMAB-ABBS
     Route: 042
     Dates: start: 20220802
  10. RITUXIMAB-ABBS [Suspect]
     Active Substance: RITUXIMAB-ABBS
     Route: 042
     Dates: start: 20220802
  11. RITUXIMAB-ABBS [Suspect]
     Active Substance: RITUXIMAB-ABBS
     Dosage: 1000 MG, DAY 1 AND 15
     Route: 042
     Dates: start: 20220802
  12. ACETAMINOPHEN [Concomitant]
     Active Substance: ACETAMINOPHEN
     Indication: Premedication
     Route: 048
  13. BENADRYL [Concomitant]
     Active Substance: DIPHENHYDRAMINE HYDROCHLORIDE
     Indication: Premedication
     Route: 048
  14. METHYLPREDNISOLONE [Concomitant]
     Active Substance: METHYLPREDNISOLONE
     Indication: Premedication
  15. SOLU-MEDROL [Concomitant]
     Active Substance: METHYLPREDNISOLONE SODIUM SUCCINATE
     Indication: Premedication
     Route: 042
  16. TICAGRELOR [Concomitant]
     Active Substance: TICAGRELOR
  17. TICAGRELOR [Concomitant]
     Active Substance: TICAGRELOR
     Route: 048
  18. REPATHA [Concomitant]
     Active Substance: EVOLOCUMAB
  19. ATORVASTATIN [Concomitant]
     Active Substance: ATORVASTATIN
     Route: 048
  20. OMEPRAZOLE [Concomitant]
     Active Substance: OMEPRAZOLE
     Route: 048
  21. APIXABAN [Concomitant]
     Active Substance: APIXABAN
     Route: 048
  22. PERINDOPRIL [Concomitant]
     Active Substance: PERINDOPRIL
     Route: 048
  23. COLCHICINE [Concomitant]
     Active Substance: COLCHICINE
     Route: 048
  24. LEFLUNOMIDE [Concomitant]
     Active Substance: LEFLUNOMIDE
     Route: 048
  25. HYDROXYCHLOROQUINE [Concomitant]
     Active Substance: HYDROXYCHLOROQUINE
     Route: 048
  26. .ALPHA.-TOCOPHEROL [Concomitant]
     Active Substance: .ALPHA.-TOCOPHEROL
     Route: 048
  27. CALCIUM [Concomitant]
     Active Substance: CALCIUM
     Route: 048
  28. VITAMIN B12 [Concomitant]
     Active Substance: CYANOCOBALAMIN
     Route: 048
  29. VITAMIN D3 [Concomitant]
     Active Substance: CHOLECALCIFEROL
     Route: 048
  30. MAGNESIUM [Concomitant]
     Active Substance: MAGNESIUM
     Route: 048
  31. KELP [IODINE] [Concomitant]
  32. FERROUS FUMARATE [Concomitant]
     Active Substance: FERROUS FUMARATE
     Route: 048
  33. EZETIMIBE [Concomitant]
     Active Substance: EZETIMIBE
     Route: 048
  34. REPATHA [Concomitant]
     Active Substance: EVOLOCUMAB
     Dosage: SC Q. 2 WEEKS
     Route: 058
  35. ISOSORBIDE DINITRATE [Concomitant]
     Active Substance: ISOSORBIDE DINITRATE

REACTIONS (29)
  - Post procedural haemorrhage [Unknown]
  - Rheumatoid arthritis [Not Recovered/Not Resolved]
  - Atrial fibrillation [Recovered/Resolved]
  - Tooth abscess [Recovering/Resolving]
  - Lower respiratory tract infection [Recovered/Resolved]
  - Blood triglycerides abnormal [Unknown]
  - Contusion [Unknown]
  - Gingival oedema [Unknown]
  - Haematoma [Unknown]
  - Hyperlipidaemia [Recovering/Resolving]
  - International normalised ratio increased [Unknown]
  - Loose tooth [Unknown]
  - Malaise [Recovered/Resolved]
  - Poor venous access [Unknown]
  - Respiratory rate increased [Recovered/Resolved]
  - Ventricular extrasystoles [Unknown]
  - Dry mouth [Not Recovered/Not Resolved]
  - Cardiac disorder [Unknown]
  - Bursitis [Not Recovered/Not Resolved]
  - Diarrhoea [Recovered/Resolved]
  - Dyspnoea [Recovered/Resolved]
  - Nausea [Recovered/Resolved]
  - Pyrexia [Recovered/Resolved]
  - Tachycardia [Recovered/Resolved]
  - Urinary tract infection [Unknown]
  - Migraine [Recovered/Resolved]
  - Therapeutic response shortened [Not Recovered/Not Resolved]
  - Intentional dose omission [Unknown]
  - Off label use [Unknown]

NARRATIVE: CASE EVENT DATE: 20220803
